FAERS Safety Report 25083239 (Version 1)
Quarter: 2025Q1

REPORT INFORMATION
  Report Type: Spontaneous
  Country: US (occurrence: US)
  Receive Date: 20250317
  Receipt Date: 20250317
  Transmission Date: 20250408
  Serious: No
  Sender: Haleon PLC
  Company Number: US-HALEON-2233068

PATIENT
  Age: 74 Year
  Sex: Female

DRUGS (1)
  1. SENSODYNE CLINICAL WHITE STAIN PROTECTOR [Suspect]
     Active Substance: POTASSIUM NITRATE\SODIUM FLUORIDE
     Indication: Product used for unknown indication

REACTIONS (5)
  - Nasal congestion [Unknown]
  - Oropharyngeal pain [Unknown]
  - Oral pain [Unknown]
  - Oral disorder [Unknown]
  - Throat tightness [Unknown]
